FAERS Safety Report 6454582-9 (Version None)
Quarter: 2009Q4

REPORT INFORMATION
  Report Type: 
  Country: None (occurrence: None)
  Receive Date: 20091124
  Receipt Date: 20091109
  Transmission Date: 20100525
  Serious: No
  Sender: FDA-Public Use
  Company Number: B0603977A

PATIENT
  Age: 8 Year

DRUGS (1)
  1. RELENZA [Suspect]
     Indication: INFLUENZA
     Dosage: 20MG TWICE PER DAY
     Route: 055

REACTIONS (1)
  - OVERDOSE [None]
